FAERS Safety Report 23908337 (Version 2)
Quarter: 2024Q2

REPORT INFORMATION
  Report Type: Other
  Country: US (occurrence: None)
  Receive Date: 20240528
  Receipt Date: 20240531
  Transmission Date: 20240715
  Serious: Yes (Hospitalization, Other)
  Sender: FDA-Public Use
  Company Number: US-ROCHE-3569339

PATIENT
  Age: 62 Year
  Sex: Female
  Weight: 77.18 kg

DRUGS (2)
  1. RITUXAN [Suspect]
     Active Substance: RITUXIMAB
     Indication: Pemphigoid
     Dosage: PRESCRIBED DOSE: INFUSE 1000MG INTRAVENOUSLY ON DAY(S) 1 AND DAY(S) 15, THEN REPEAT EVERY 6 MONTH(S)
     Route: 041
     Dates: start: 2021
  2. RITUXAN [Suspect]
     Active Substance: RITUXIMAB
     Indication: Lichen sclerosus

REACTIONS (7)
  - Septic shock [Recovered/Resolved]
  - Medical induction of coma [Recovered/Resolved]
  - Fall [Unknown]
  - Spinal fracture [Unknown]
  - Sciatica [Unknown]
  - Hypotension [Unknown]
  - Off label use [Unknown]

NARRATIVE: CASE EVENT DATE: 20230101
